FAERS Safety Report 6215268-9 (Version None)
Quarter: 2009Q2

REPORT INFORMATION
  Report Type: 
  Country: None (occurrence: None)
  Receive Date: 20090604
  Receipt Date: 20090527
  Transmission Date: 20091009
  Serious: Yes (Hospitalization)
  Sender: FDA-Public Use
  Company Number: JP-SANOFI-SYNTHELABO-A01200903953

PATIENT
  Sex: Female
  Weight: 3.02 kg

DRUGS (11)
  1. ALLEGRA [Concomitant]
     Indication: DRUG EXPOSURE DURING PREGNANCY
     Dosage: UNK
     Route: 064
     Dates: end: 20090325
  2. LUTEONIN [Concomitant]
     Indication: DRUG EXPOSURE DURING PREGNANCY
     Dosage: UNK
     Route: 064
     Dates: end: 20090325
  3. RISPERDAL [Suspect]
     Indication: DRUG EXPOSURE DURING PREGNANCY
     Route: 064
     Dates: end: 20090325
  4. HALCION [Suspect]
     Indication: DRUG EXPOSURE DURING PREGNANCY
     Route: 064
     Dates: end: 20090325
  5. CONTOMIN [Suspect]
     Indication: DRUG EXPOSURE DURING PREGNANCY
     Route: 064
     Dates: start: 20080819, end: 20090325
  6. EURODIN [Suspect]
     Indication: DRUG EXPOSURE DURING PREGNANCY
     Dosage: 4 MG
     Route: 064
     Dates: end: 20090325
  7. FLUVOXAMINE MALEATE [Suspect]
     Indication: DRUG EXPOSURE DURING PREGNANCY
     Route: 064
     Dates: end: 20090325
  8. RIVOTRIL [Suspect]
     Indication: DRUG EXPOSURE DURING PREGNANCY
     Route: 064
     Dates: end: 20090325
  9. MAGLAX [Concomitant]
     Indication: DRUG EXPOSURE DURING PREGNANCY
     Dosage: UNK
     Route: 064
     Dates: end: 20090325
  10. WYPAX [Suspect]
     Indication: DRUG EXPOSURE DURING PREGNANCY
     Dosage: 1 MG
     Route: 064
     Dates: end: 20090325
  11. MYSLEE [Suspect]
     Indication: INSOMNIA
     Dosage: 10 MG
     Route: 064
     Dates: end: 20090325

REACTIONS (11)
  - CRYING [None]
  - DRUG EXPOSURE DURING PREGNANCY [None]
  - DRUG WITHDRAWAL SYNDROME NEONATAL [None]
  - EXTREMITY CONTRACTURE [None]
  - HYPOTONIA NEONATAL [None]
  - IRRITABILITY [None]
  - NEONATAL ASPHYXIA [None]
  - RESTLESSNESS [None]
  - SOMNOLENCE [None]
  - TACHYCARDIA [None]
  - TACHYPNOEA [None]
